FAERS Safety Report 4878124-4 (Version None)
Quarter: 2006Q1

REPORT INFORMATION
  Report Type: 
  Country: None (occurrence: None)
  Receive Date: 20060110
  Receipt Date: 20060102
  Transmission Date: 20060701
  Serious: Yes (Hospitalization)
  Sender: FDA-Public Use
  Company Number: 200610014BFR

PATIENT
  Age: 10 Year
  Sex: Female

DRUGS (2)
  1. CIPROFLOXACIN [Suspect]
     Indication: LUNG INFECTION
     Dosage: SEE IMAGE
     Route: 048
  2. CIPROFLOXACIN [Suspect]
     Indication: PSEUDOMONAS INFECTION
     Dosage: SEE IMAGE
     Route: 048

REACTIONS (4)
  - ARTHRALGIA [None]
  - ARTHROPATHY [None]
  - INTERMITTENT CLAUDICATION [None]
  - OSTEOCHONDROSIS [None]
